FAERS Safety Report 15658466 (Version 4)
Quarter: 2021Q1

REPORT INFORMATION
  Report Type: Report from Study
  Country: US (occurrence: US)
  Receive Date: 20181126
  Receipt Date: 20210314
  Transmission Date: 20210419
  Serious: Yes (Other)
  Sender: FDA-Public Use
  Company Number: US-SA-2016SA191689

PATIENT
  Age: 44 Year
  Sex: Female

DRUGS (4)
  1. ALEMTUZUMAB [Suspect]
     Active Substance: ALEMTUZUMAB
     Dosage: 12 MG, QD
     Route: 041
     Dates: start: 20171002, end: 20171004
  2. ALEMTUZUMAB [Suspect]
     Active Substance: ALEMTUZUMAB
     Indication: MULTIPLE SCLEROSIS
     Dosage: 12 MG,QD
     Route: 041
     Dates: start: 20161003, end: 20161007
  3. ALEMTUZUMAB [Suspect]
     Active Substance: ALEMTUZUMAB
     Dosage: 12 MG, QD
     Route: 041
     Dates: start: 20181030, end: 20181101
  4. DREWELL [Suspect]
     Active Substance: DIPHENHYDRAMINE HYDROCHLORIDE
     Route: 042

REACTIONS (19)
  - Neuralgia [Recovered/Resolved]
  - Dyspnoea [Not Recovered/Not Resolved]
  - Unevaluable event [Recovered/Resolved]
  - White blood cell count decreased [Recovering/Resolving]
  - Cardiac flutter [Recovered/Resolved]
  - Cough [Recovered/Resolved]
  - Weight increased [Unknown]
  - Lymphocyte count decreased [Recovered/Resolved]
  - Alopecia [Not Recovered/Not Resolved]
  - Insomnia [Recovered/Resolved]
  - Muscular weakness [Recovered/Resolved]
  - Urticaria [Recovered/Resolved]
  - Fatigue [Unknown]
  - Feeling hot [Not Recovered/Not Resolved]
  - Respiratory disorder [Recovered/Resolved]
  - Palpitations [Not Recovered/Not Resolved]
  - Pain in extremity [Recovered/Resolved]
  - Myalgia [Recovered/Resolved]
  - Asthenia [Not Recovered/Not Resolved]

NARRATIVE: CASE EVENT DATE: 2016
